FAERS Safety Report 6091997-5 (Version None)
Quarter: 2009Q1

REPORT INFORMATION
  Report Type: 
  Country: None (occurrence: None)
  Receive Date: 20090225
  Receipt Date: 20081219
  Transmission Date: 20090719
  Serious: No
  Sender: FDA-Public Use
  Company Number: A0759303A

PATIENT
  Age: 71 Year
  Sex: Female

DRUGS (4)
  1. VALTREX [Suspect]
     Dosage: 1G THREE TIMES PER DAY
     Route: 048
     Dates: start: 20081117, end: 20081124
  2. LEXAPRO [Suspect]
     Indication: DRUG USE FOR UNKNOWN INDICATION
  3. COZAAR [Concomitant]
  4. ANTIDEPRESSANT [Concomitant]

REACTIONS (2)
  - RASH [None]
  - THERAPEUTIC RESPONSE UNEXPECTED [None]
